FAERS Safety Report 21932128 (Version 3)
Quarter: 2023Q2

REPORT INFORMATION
  Report Type: Spontaneous
  Country: US (occurrence: US)
  Receive Date: 20230131
  Receipt Date: 20230503
  Transmission Date: 20230722
  Serious: No
  Sender: FDA-Public Use
  Company Number: US-BRISTOL-MYERS SQUIBB COMPANY-2023-014742

PATIENT
  Age: 34 Year
  Sex: Female
  Weight: 98.43 kg

DRUGS (5)
  1. SOTYKTU [Suspect]
     Active Substance: DEUCRAVACITINIB
     Indication: Psoriasis
     Route: 048
     Dates: start: 20221228, end: 20230128
  2. SOTYKTU [Suspect]
     Active Substance: DEUCRAVACITINIB
     Route: 048
     Dates: start: 20230104, end: 20230128
  3. LEVOTHYROXINE [Concomitant]
     Active Substance: LEVOTHYROXINE
     Indication: Product used for unknown indication
  4. METHOTREXATE [Concomitant]
     Active Substance: METHOTREXATE
     Indication: Product used for unknown indication
  5. SPRINTEC [Concomitant]
     Active Substance: ETHINYL ESTRADIOL\NORGESTIMATE
     Indication: Product used for unknown indication

REACTIONS (7)
  - Swelling face [Unknown]
  - Swelling [Unknown]
  - Pruritus [Unknown]
  - Oral pain [Unknown]
  - Mouth swelling [Unknown]
  - Aphthous ulcer [Recovered/Resolved]
  - Dysphagia [Unknown]

NARRATIVE: CASE EVENT DATE: 20230101
